FAERS Safety Report 22647743 (Version 1)
Quarter: 2023Q2

REPORT INFORMATION
  Report Type: Spontaneous
  Country: US (occurrence: US)
  Receive Date: 20230628
  Receipt Date: 20230628
  Transmission Date: 20230721
  Serious: No
  Sender: FDA-Public Use
  Company Number: US-BRISTOL-MYERS SQUIBB COMPANY-2023-089921

PATIENT
  Age: 86 Year
  Sex: Male

DRUGS (2)
  1. APIXABAN [Suspect]
     Active Substance: APIXABAN
     Indication: Cerebrovascular accident prophylaxis
  2. APIXABAN [Suspect]
     Active Substance: APIXABAN

REACTIONS (2)
  - Blood creatinine increased [Unknown]
  - Treatment noncompliance [Unknown]
